FAERS Safety Report 21666194 (Version 2)
Quarter: 2022Q4

REPORT INFORMATION
  Report Type: Spontaneous
  Country: US (occurrence: US)
  Receive Date: 20221201
  Receipt Date: 20221229
  Transmission Date: 20230113
  Serious: Yes (Death, Other)
  Sender: FDA-Public Use
  Company Number: US-SUNOVION-2022SUN003305

PATIENT
  Age: 11 Year
  Sex: Female

DRUGS (2)
  1. APTIOM [Suspect]
     Active Substance: ESLICARBAZEPINE ACETATE
     Indication: Seizure
     Dosage: UNK
     Route: 048
     Dates: start: 20200819
  2. BRIVIACT [Concomitant]
     Active Substance: BRIVARACETAM
     Indication: Seizure
     Dosage: UNK
     Route: 065
     Dates: start: 20211020, end: 20220820

REACTIONS (2)
  - Aspiration [Fatal]
  - Seizure [Fatal]

NARRATIVE: CASE EVENT DATE: 20221031
